FAERS Safety Report 21880709 (Version 1)
Quarter: 2023Q1

REPORT INFORMATION
  Report Type: Spontaneous
  Country: LT (occurrence: LT)
  Receive Date: 20230118
  Receipt Date: 20230118
  Transmission Date: 20230418
  Serious: Yes (Other)
  Sender: FDA-Public Use
  Company Number: LT-002147023-NVSC2022LT278821

PATIENT

DRUGS (7)
  1. METOPROLOL [Suspect]
     Active Substance: METOPROLOL
     Indication: Product used for unknown indication
     Dosage: MATERNAL DOSE: 50 MG
     Route: 064
  2. SOTALOL [Suspect]
     Active Substance: SOTALOL
     Indication: Product used for unknown indication
     Dosage: MATERNAL DOSE: 80 MG
     Route: 064
  3. DIGOXIN [Suspect]
     Active Substance: DIGOXIN
     Indication: Product used for unknown indication
     Dosage: MATERNAL DOSE: 0.25 MG
     Route: 064
  4. DIGOXIN [Suspect]
     Active Substance: DIGOXIN
     Dosage: MATERNAL DOSE: 0.25 MG
     Route: 064
  5. DIGOXIN [Suspect]
     Active Substance: DIGOXIN
     Dosage: MATERNAL DOSE: 0.25 MG
     Route: 064
  6. PROPAFENONE [Suspect]
     Active Substance: PROPAFENONE
     Indication: Product used for unknown indication
     Dosage: MATERNAL DOSE: 140 MG
     Route: 064
  7. PROPAFENONE [Suspect]
     Active Substance: PROPAFENONE
     Dosage: MATERNAL DOSE: 150 MG
     Route: 064

REACTIONS (2)
  - Hydrops foetalis [Unknown]
  - Foetal exposure during pregnancy [Unknown]
